FAERS Safety Report 8049585-7 (Version None)
Quarter: 2012Q1

REPORT INFORMATION
  Report Type: 
  Country: None (occurrence: None)
  Receive Date: 20120111
  Receipt Date: 20120103
  Transmission Date: 20120608
  Serious: Yes (Death)
  Sender: FDA-Public Use
  Company Number: KAD201201-000002

PATIENT
  Sex: Male

DRUGS (3)
  1. INTERFERON [Suspect]
     Dates: start: 20110923, end: 20111211
  2. RIBAVIRIN [Suspect]
     Dosage: 1000 MG DAILY(600 MG/ 400 MG)
     Dates: start: 20110923, end: 20111211
  3. INCIVEK [Suspect]
     Dates: start: 20110923, end: 20111211

REACTIONS (2)
  - LUNG DISORDER [None]
  - CARDIAC DISORDER [None]
